FAERS Safety Report 9034056 (Version 1)
Quarter: 2013Q1

REPORT INFORMATION
  Report Type: Spontaneous
  Country: US (occurrence: None)
  Receive Date: 20130116
  Receipt Date: 20130116
  Transmission Date: 20140127
  Serious: Yes (Hospitalization)
  Sender: FDA-Public Use
  Company Number: None

PATIENT
  Sex: Male
  Weight: 107.96 kg

DRUGS (3)
  1. GEMCITABINE [Suspect]
     Dosage: EVERY 2 WEEKS FOR 3 CYCLES, IV
     Dates: start: 20121031
  2. CISPLATIN [Suspect]
     Dosage: EVERY 2 WEEKS FOR 3 CYCLES,IV
     Dates: start: 20121031
  3. NEULASTA [Suspect]
     Dosage: 6 MG SUB Q 24-48 HRS POST CHEMO
     Route: 058

REACTIONS (3)
  - Toxicity to various agents [None]
  - Phlebitis [None]
  - Pyrexia [None]
